FAERS Safety Report 4661003-5 (Version None)
Quarter: 2005Q2

REPORT INFORMATION
  Report Type: 
  Country: None (occurrence: None)
  Receive Date: 20050511
  Receipt Date: 20050428
  Transmission Date: 20051028
  Serious: Yes (Hospitalization)
  Sender: FDA-Public Use
  Company Number: 2005067178

PATIENT
  Age: 28 Year
  Sex: Female

DRUGS (10)
  1. PROVERA [Suspect]
     Indication: ILL-DEFINED DISORDER
     Dosage: 10 MG, 1 IN 1 DAY, O RAL
     Route: 048
     Dates: start: 20050208
  2. BLINDED THERAPY (BLINDED THERAPY) [Suspect]
     Indication: CYSTITIS INTERSTITIAL
     Dosage: 2 IN 1 WEEK, OTHER
     Dates: start: 20041228, end: 20050203
  3. PENTOSAN POLYSULFATE SODIUM (PENTOSAN POLYSULFATE SODIUM) [Suspect]
     Indication: CYSTITIS INTERSTITIAL
     Dosage: 100 MG (2 IN 1 D), ORAL
     Route: 048
     Dates: start: 20041228
  4. NYSTATIN [Concomitant]
  5. PAROXETINE HCL [Concomitant]
  6. HYDROXYZINE HCL [Concomitant]
  7. FEXOFENADINE HYDROCHLORIDE [Concomitant]
  8. LIDOCAINE HYDROCHLORIDE [Concomitant]
  9. SOLIFENACIN SUCCINATE (SOLIFENACIN SUCCINATE) [Concomitant]
  10. AMITRIPTYLINE HCL [Concomitant]

REACTIONS (5)
  - CHILLS [None]
  - MUSCLE SPASMS [None]
  - PELVIC PAIN [None]
  - VAGINAL HAEMORRHAGE [None]
  - VIRAL UPPER RESPIRATORY TRACT INFECTION [None]
